FAERS Safety Report 17225851 (Version 2)
Quarter: 2020Q1

REPORT INFORMATION
  Report Type: Report from Study
  Country: US (occurrence: US)
  Receive Date: 20200102
  Receipt Date: 20200115
  Transmission Date: 20200409
  Serious: Yes (Hospitalization, Other)
  Sender: FDA-Public Use
  Company Number: US-ACTELION-A-US2017-152358

PATIENT
  Age: 55 Year
  Sex: Male
  Weight: 56.69 kg

DRUGS (5)
  1. POTASSIUM MAGNESIUM CITRATE [Concomitant]
  2. ALLOPURINOL. [Concomitant]
     Active Substance: ALLOPURINOL
     Dosage: UNK
     Dates: start: 20171208
  3. OPSUMIT [Suspect]
     Active Substance: MACITENTAN
     Indication: PULMONARY ARTERIAL HYPERTENSION
     Dosage: 10 MG, QD
     Route: 048
     Dates: start: 20170216, end: 20191119
  4. WARFARIN [Concomitant]
     Active Substance: WARFARIN
  5. LASIX [Concomitant]
     Active Substance: FUROSEMIDE

REACTIONS (23)
  - Cardiac failure chronic [Unknown]
  - Pyrexia [Recovered/Resolved]
  - Cardiac flutter [Recovered/Resolved with Sequelae]
  - Pulmonary hypertension [Recovered/Resolved with Sequelae]
  - Packed red blood cell transfusion [Unknown]
  - Weight increased [Recovered/Resolved]
  - Blood bilirubin increased [Unknown]
  - Dyspnoea exertional [Recovered/Resolved with Sequelae]
  - Skin weeping [Recovered/Resolved with Sequelae]
  - Sickle cell disease [Unknown]
  - Dyspnoea [Recovered/Resolved with Sequelae]
  - Orthopnoea [Recovered/Resolved with Sequelae]
  - Productive cough [Recovered/Resolved]
  - Hypoxia [Recovered/Resolved]
  - Abdominal distension [Recovered/Resolved with Sequelae]
  - Fluid overload [Recovered/Resolved]
  - Fatigue [Recovered/Resolved]
  - Peripheral swelling [Recovered/Resolved with Sequelae]
  - Haemoglobin decreased [Unknown]
  - Oedema [Unknown]
  - Oedema peripheral [Recovered/Resolved]
  - Asthenia [Recovered/Resolved]
  - Gout [Unknown]

NARRATIVE: CASE EVENT DATE: 20170501
